FAERS Safety Report 18626746 (Version 3)
Quarter: 2021Q1

REPORT INFORMATION
  Report Type: Report from Study
  Country: None (occurrence: US)
  Receive Date: 20201217
  Receipt Date: 20210211
  Transmission Date: 20210419
  Serious: Yes (Other)
  Sender: FDA-Public Use
  Company Number: US-ABBVIE-20K-163-3689441-00

PATIENT
  Age: 78 Year
  Sex: Female
  Weight: 79 kg

DRUGS (9)
  1. TRULICITY [Suspect]
     Active Substance: DULAGLUTIDE
     Indication: DIABETES MELLITUS
     Route: 065
  2. ALLOPURINOL. [Concomitant]
     Active Substance: ALLOPURINOL
     Indication: GOUT
  3. VENLAFAXINE [Concomitant]
     Active Substance: VENLAFAXINE HYDROCHLORIDE
     Indication: ANXIETY
  4. CARVEDILOL. [Concomitant]
     Active Substance: CARVEDILOL
     Indication: CARDIAC FAILURE CONGESTIVE
  5. CREON [Suspect]
     Active Substance: PANCRELIPASE AMYLASE\PANCRELIPASE LIPASE\PANCRELIPASE PROTEASE
     Indication: PANCREATITIS
     Dosage: 1 CAPSULE PER MEAL/STARTED CREON IN FEB OR MAR 2020?36000 U THREE TIMES DAILY.
     Route: 048
     Dates: start: 202003
  6. ATORVASTATIN [Concomitant]
     Active Substance: ATORVASTATIN
     Indication: BLOOD CHOLESTEROL INCREASED
  7. ENTRESTO [Concomitant]
     Active Substance: SACUBITRIL\VALSARTAN
     Indication: CARDIAC DISORDER
  8. INSULIN [Concomitant]
     Active Substance: INSULIN NOS
     Indication: DIABETES MELLITUS
  9. LASIX [Concomitant]
     Active Substance: FUROSEMIDE
     Indication: PERICARDIAL EFFUSION

REACTIONS (3)
  - Abdominal pain upper [Unknown]
  - Chronic kidney disease [Not Recovered/Not Resolved]
  - Pancreatitis [Unknown]

NARRATIVE: CASE EVENT DATE: 202011
